FAERS Safety Report 26120238 (Version 3)
Quarter: 2025Q4

REPORT INFORMATION
  Report Type: Report from Study
  Country: US (occurrence: US)
  Receive Date: 20251204
  Receipt Date: 20251218
  Transmission Date: 20260118
  Serious: Yes (Death, Other)
  Sender: ACADIA PHARMACEUTICALS
  Company Number: US-ACADIA PHARMACEUTICALS INC.-ACA-2025-PIM-012844

PATIENT
  Age: 84 Year
  Sex: Male

DRUGS (2)
  1. NUPLAZID [Suspect]
     Active Substance: PIMAVANSERIN TARTRATE
     Indication: Parkinson^s disease
     Dosage: 34 MILLIGRAM, QD
     Route: 048
     Dates: start: 202510
  2. NUPLAZID [Suspect]
     Active Substance: PIMAVANSERIN TARTRATE
     Indication: Hallucination

REACTIONS (10)
  - Death [Fatal]
  - Paranoia [Unknown]
  - Cognitive disorder [Unknown]
  - Delusion [Unknown]
  - Disinhibition [Unknown]
  - Condition aggravated [Unknown]
  - Blood pressure abnormal [Unknown]
  - Hyperhidrosis [Unknown]
  - Dysphagia [Unknown]
  - Vomiting [Unknown]

NARRATIVE: CASE EVENT DATE: 20251001
